FAERS Safety Report 11391920 (Version 1)
Quarter: 2015Q3

REPORT INFORMATION
  Report Type: Spontaneous
  Country: AU (occurrence: None)
  Receive Date: 20150814
  Receipt Date: 20150814
  Transmission Date: 20151125
  Serious: Yes (Hospitalization, Other)
  Sender: FDA-Public Use
  Company Number: ADR-2015-01540

PATIENT
  Age: 26 Year
  Sex: Male

DRUGS (1)
  1. BACLOFEN. [Suspect]
     Active Substance: BACLOFEN
     Indication: ALCOHOL USE

REACTIONS (7)
  - Formication [None]
  - Drug tolerance [None]
  - Paraesthesia [None]
  - Drug dependence [None]
  - Treatment noncompliance [None]
  - Drug withdrawal syndrome [None]
  - Withdrawal syndrome [None]

NARRATIVE: CASE EVENT DATE: 20140801
